FAERS Safety Report 19220830 (Version 1)
Quarter: 2021Q2

REPORT INFORMATION
  Report Type: Report from Study
  Country: DE (occurrence: DE)
  Receive Date: 20210505
  Receipt Date: 20210505
  Transmission Date: 20210717
  Serious: Yes (Hospitalization)
  Sender: FDA-Public Use
  Company Number: DE-AMGEN-DEUNI2021067835

PATIENT
  Age: 62 Year
  Sex: Male
  Weight: 90 kg

DRUGS (14)
  1. FOLINIC ACID [Suspect]
     Active Substance: LEUCOVORIN
     Indication: COLORECTAL CANCER METASTATIC
     Dosage: 760 MILLIGRAM
     Route: 065
     Dates: start: 20190515
  2. TILIDIN [Concomitant]
     Active Substance: NALOXONE HYDROCHLORIDE\TILIDINE HYDROCHLORIDE
     Dosage: 8 MILLIGRAM, BID
     Route: 048
     Dates: start: 20191001
  3. FLUOROURACIL. [Suspect]
     Active Substance: FLUOROURACIL
     Dosage: 760 MILLIGRAM
     Route: 040
     Dates: start: 20190917
  4. FLUOROURACIL. [Suspect]
     Active Substance: FLUOROURACIL
     Dosage: 4500 MILLIGRAM
     Route: 042
     Dates: start: 20190917
  5. NOVAMINSULFON?RATIOPHARM [Concomitant]
     Active Substance: METAMIZOLE
     Indication: PAIN
     Dosage: 500 MILLIGRAM, TID
     Route: 048
     Dates: start: 20190515
  6. CALCIUM D3 [Concomitant]
     Active Substance: CALCIUM\CHOLECALCIFEROL
     Indication: HYPOCALCAEMIA
     Dosage: 500 UNKNOWN/ QD (100 MG/880 I.E. BRAUSETABLETTEN)
     Route: 048
     Dates: start: 20190724, end: 20190902
  7. PANITUMUMAB [Suspect]
     Active Substance: PANITUMUMAB
     Indication: COLORECTAL CANCER METASTATIC
     Dosage: 440 MILLIGRAM
     Route: 042
     Dates: start: 20190603
  8. FLUOROURACIL. [Suspect]
     Active Substance: FLUOROURACIL
     Indication: COLORECTAL CANCER METASTATIC
     Dosage: 760 MILLIGRAM
     Route: 040
     Dates: start: 20190515
  9. ZOPICLON [Concomitant]
     Active Substance: ZOPICLONE
     Dosage: 3.75 MILLIGRAM, QD
     Route: 048
     Dates: start: 20190909
  10. FLUOROURACIL. [Suspect]
     Active Substance: FLUOROURACIL
     Dosage: 4500 MILLIGRAM
     Route: 042
     Dates: start: 20190515
  11. FLUOROURACIL. [Suspect]
     Active Substance: FLUOROURACIL
     Dosage: 4500 MILLIGRAM
     Route: 040
     Dates: start: 20190722
  12. CEFUROXIM [CEFUROXIME] [Concomitant]
     Active Substance: CEFUROXIME
     Indication: SKIN ULCER
     Dosage: 500 MILLIGRAM, BID
     Route: 048
     Dates: start: 20190715, end: 20190721
  13. FLUOROURACIL. [Suspect]
     Active Substance: FLUOROURACIL
     Dosage: 760 MILLIGRAM
     Route: 042
     Dates: start: 20190722
  14. IRINOTECAN [Suspect]
     Active Substance: IRINOTECAN
     Indication: COLORECTAL CANCER METASTATIC
     Dosage: 340 MILLIGRAM
     Route: 065
     Dates: start: 20190515

REACTIONS (1)
  - Colitis [Recovered/Resolved]

NARRATIVE: CASE EVENT DATE: 20191129
